FAERS Safety Report 8264824-5 (Version None)
Quarter: 2012Q2

REPORT INFORMATION
  Report Type: 
  Country: None (occurrence: None)
  Receive Date: 20120406
  Receipt Date: 20111024
  Transmission Date: 20120825
  Serious: Yes (Hospitalization)
  Sender: FDA-Public Use
  Company Number: US-ASTELLAS-2011US006471

PATIENT
  Sex: Female
  Weight: 56 kg

DRUGS (2)
  1. PROGRAF [Suspect]
     Dosage: UNK
     Route: 065
     Dates: start: 20110930
  2. PROGRAF [Suspect]
     Indication: LIVER TRANSPLANT
     Dosage: UNK
     Route: 065
     Dates: start: 20090101, end: 20110801

REACTIONS (2)
  - HEPATIC FAILURE [None]
  - TREATMENT NONCOMPLIANCE [None]
